FAERS Safety Report 17069811 (Version 1)
Quarter: 2019Q4

REPORT INFORMATION
  Report Type: Report from Study
  Country: DE (occurrence: DE)
  Receive Date: 20191125
  Receipt Date: 20191125
  Transmission Date: 20200122
  Serious: Yes (Other)
  Sender: FDA-Public Use
  Company Number: DE-ROCHE-2475787

PATIENT
  Age: 51 Year
  Sex: Female

DRUGS (37)
  1. CYCLOPHOSPHAMIDE. [Suspect]
     Active Substance: CYCLOPHOSPHAMIDE
     Indication: DIFFUSE LARGE B-CELL LYMPHOMA
     Dosage: 1300 MG, UNK
     Route: 041
     Dates: start: 20190117, end: 20190117
  2. CYCLOPHOSPHAMIDE. [Suspect]
     Active Substance: CYCLOPHOSPHAMIDE
     Dosage: 1300 MG, UNK
     Route: 041
     Dates: start: 20190321, end: 20190321
  3. DOXORUBICIN [Suspect]
     Active Substance: DOXORUBICIN
     Indication: DIFFUSE LARGE B-CELL LYMPHOMA
     Dosage: 86.5 MG, UNK
     Route: 041
     Dates: start: 20190117, end: 20190117
  4. DEXAMETHASON [DEXAMETHASONE] [Concomitant]
     Active Substance: DEXAMETHASONE
     Indication: PROPHYLAXIS
     Dosage: UNK
     Route: 042
     Dates: start: 20181203
  5. RITUXIMAB. [Suspect]
     Active Substance: RITUXIMAB
     Dosage: 649 MG, UNK
     Route: 041
     Dates: start: 20190207, end: 20190207
  6. RITUXIMAB. [Suspect]
     Active Substance: RITUXIMAB
     Dosage: 649 MG, UNK
     Route: 041
     Dates: start: 20190117, end: 20190117
  7. DOXORUBICIN [Suspect]
     Active Substance: DOXORUBICIN
     Dosage: 86.5 MG, UNK
     Route: 041
     Dates: start: 20181204, end: 20181204
  8. DOXORUBICIN [Suspect]
     Active Substance: DOXORUBICIN
     Dosage: 86.5 MG, UNK
     Route: 041
     Dates: start: 20190321, end: 20190321
  9. UROMITEXAN [Concomitant]
     Active Substance: MESNA
     Indication: PROPHYLAXIS
     Dosage: UNK
     Route: 042
     Dates: start: 20181203
  10. LONQUEX [Concomitant]
     Active Substance: LIPEGFILGRASTIM
     Indication: PROPHYLAXIS
     Dosage: UNK
     Route: 058
     Dates: start: 20181205
  11. CYCLOPHOSPHAMIDE. [Suspect]
     Active Substance: CYCLOPHOSPHAMIDE
     Dosage: 1300 MG, UNK
     Route: 041
     Dates: start: 20190228, end: 20190228
  12. RITUXIMAB. [Suspect]
     Active Substance: RITUXIMAB
     Dosage: 649 MG, UNK
     Route: 041
     Dates: start: 20190228, end: 20190228
  13. PREDNISONE. [Suspect]
     Active Substance: PREDNISONE
     Indication: DIFFUSE LARGE B-CELL LYMPHOMA
     Dosage: 500 MG, UNK
     Route: 048
     Dates: start: 20190117, end: 20190121
  14. VINCRISTINE [Suspect]
     Active Substance: VINCRISTINE
     Indication: DIFFUSE LARGE B-CELL LYMPHOMA
     Dosage: 2 MG, UNK
     Route: 041
     Dates: start: 20181204, end: 20181204
  15. PANTOPRAZOL [PANTOPRAZOLE] [Concomitant]
     Active Substance: PANTOPRAZOLE
     Indication: PROPHYLAXIS
     Dosage: UNK
     Route: 048
     Dates: start: 20181128
  16. RITUXIMAB. [Suspect]
     Active Substance: RITUXIMAB
     Dosage: 649 MG, UNK
     Route: 041
     Dates: start: 20190321, end: 20190321
  17. PREDNISONE. [Suspect]
     Active Substance: PREDNISONE
     Dosage: 500 MG, UNK
     Route: 048
     Dates: start: 20181227, end: 20181231
  18. VINCRISTINE [Suspect]
     Active Substance: VINCRISTINE
     Dosage: 2 MG, UNK
     Route: 041
     Dates: start: 20190228, end: 20190228
  19. DOXORUBICIN [Suspect]
     Active Substance: DOXORUBICIN
     Dosage: 86.5 MG, UNK
     Route: 041
     Dates: start: 20181227, end: 20181227
  20. RITUXIMAB. [Suspect]
     Active Substance: RITUXIMAB
     Dosage: 649 MG, UNK
     Route: 041
     Dates: start: 20181227, end: 20181227
  21. RITUXIMAB. [Suspect]
     Active Substance: RITUXIMAB
     Dosage: 649 MG, UNK
     Route: 041
     Dates: start: 20181203, end: 20181203
  22. RITUXIMAB. [Suspect]
     Active Substance: RITUXIMAB
     Dosage: 649 MG, UNK
     Route: 041
     Dates: start: 20190424
  23. PREDNISONE. [Suspect]
     Active Substance: PREDNISONE
     Dosage: 500 MG, UNK
     Route: 048
     Dates: start: 20190228, end: 20190304
  24. CYCLOPHOSPHAMIDE. [Suspect]
     Active Substance: CYCLOPHOSPHAMIDE
     Dosage: 1300 MG, UNK
     Route: 041
     Dates: start: 20181227, end: 20181227
  25. DOXORUBICIN [Suspect]
     Active Substance: DOXORUBICIN
     Dosage: 86.5 MG, UNK
     Route: 041
     Dates: start: 20190228, end: 20190228
  26. CLEMASTIN [Concomitant]
     Active Substance: CLEMASTINE
     Indication: PROPHYLAXIS
     Dosage: UNK
     Route: 042
     Dates: start: 20181203
  27. RITUXIMAB. [Suspect]
     Active Substance: RITUXIMAB
     Indication: DIFFUSE LARGE B-CELL LYMPHOMA
     Dosage: 649 MG, UNK
     Route: 041
     Dates: start: 20190410, end: 20190410
  28. PREDNISONE. [Suspect]
     Active Substance: PREDNISONE
     Dosage: 500 MG, UNK
     Route: 048
     Dates: start: 20190321, end: 20190325
  29. PREDNISONE. [Suspect]
     Active Substance: PREDNISONE
     Dosage: 500 MG, UNK
     Route: 048
     Dates: start: 20181204, end: 20181208
  30. VINCRISTINE [Suspect]
     Active Substance: VINCRISTINE
     Dosage: 2 MG, UNK
     Route: 041
     Dates: start: 20190117, end: 20190117
  31. VINCRISTINE [Suspect]
     Active Substance: VINCRISTINE
     Dosage: 2 MG, UNK
     Route: 041
     Dates: start: 20190207, end: 20190207
  32. VINCRISTINE [Suspect]
     Active Substance: VINCRISTINE
     Dosage: 2 MG, UNK
     Route: 041
     Dates: start: 20181227, end: 20181227
  33. CYCLOPHOSPHAMIDE. [Suspect]
     Active Substance: CYCLOPHOSPHAMIDE
     Dosage: 1300 MG, UNK
     Route: 041
     Dates: start: 20181204, end: 20181204
  34. CYCLOPHOSPHAMIDE. [Suspect]
     Active Substance: CYCLOPHOSPHAMIDE
     Dosage: 1300 MG, UNK
     Route: 041
     Dates: start: 20190207, end: 20190207
  35. DOXORUBICIN [Suspect]
     Active Substance: DOXORUBICIN
     Dosage: 86.5 MG, UNK
     Route: 041
     Dates: start: 20190207, end: 20190207
  36. METOCLOPRAMID [METOCLOPRAMIDE] [Concomitant]
     Active Substance: METOCLOPRAMIDE
     Indication: PROPHYLAXIS
     Dosage: UNK
     Route: 048
     Dates: start: 20181130
  37. PALONOSETRON. [Concomitant]
     Active Substance: PALONOSETRON HYDROCHLORIDE
     Indication: PROPHYLAXIS
     Dosage: UNK
     Route: 042
     Dates: start: 20181227

REACTIONS (6)
  - Musculoskeletal chest pain [Recovered/Resolved]
  - Back pain [Recovered/Resolved]
  - Neuropathy peripheral [Not Recovered/Not Resolved]
  - Rib fracture [Recovered/Resolved]
  - Mucosal inflammation [Recovered/Resolved]
  - Upper respiratory tract infection [Recovered/Resolved]

NARRATIVE: CASE EVENT DATE: 20181212
